FAERS Safety Report 6820866-5 (Version None)
Quarter: 2010Q3

REPORT INFORMATION
  Report Type: 
  Country: None (occurrence: None)
  Receive Date: 20100707
  Receipt Date: 20070709
  Transmission Date: 20110219
  Serious: No
  Sender: FDA-Public Use
  Company Number: US-PFIZER INC-2007055653

PATIENT
  Sex: Female
  Weight: 53.636 kg

DRUGS (2)
  1. ZOLOFT [Suspect]
     Indication: EMOTIONAL DISORDER
     Dates: start: 20070705, end: 20070705
  2. PRAVACHOL [Concomitant]
     Indication: BLOOD CHOLESTEROL INCREASED

REACTIONS (4)
  - DIARRHOEA [None]
  - MALAISE [None]
  - NAUSEA [None]
  - VOMITING [None]
